FAERS Safety Report 22301747 (Version 1)
Quarter: 2023Q2

REPORT INFORMATION
  Report Type: Spontaneous
  Country: DE (occurrence: DE)
  Receive Date: 20230510
  Receipt Date: 20230510
  Transmission Date: 20230722
  Serious: Yes (Hospitalization)
  Sender: FDA-Public Use
  Company Number: DE-SA-2020SA306619

PATIENT
  Age: 71 Year
  Sex: Female

DRUGS (18)
  1. LEFLUNOMIDE [Suspect]
     Active Substance: LEFLUNOMIDE
     Indication: Rheumatoid arthritis
     Dosage: 15 MILLIGRAM, ONCE A DAY
     Route: 048
     Dates: start: 20180208, end: 20210709
  2. SULFASALAZINE [Suspect]
     Active Substance: SULFASALAZINE
     Indication: Rheumatoid arthritis
     Dosage: 1000 MILLIGRAM, TWO TIMES A DAY
     Route: 048
     Dates: start: 199608, end: 20201010
  3. SARILUMAB [Suspect]
     Active Substance: SARILUMAB
     Indication: Rheumatoid arthritis
     Dosage: 200 MILLIGRAM, 2 WEEK
     Route: 058
     Dates: start: 20200820
  4. AMLODIPINE [Concomitant]
     Active Substance: AMLODIPINE BESYLATE
     Indication: Hypertonia
     Dosage: 10 MILLIGRAM, ONCE A DAY
     Route: 048
     Dates: start: 20070227
  5. CALCIUM VERLA D [Concomitant]
     Indication: Osteoporosis
     Dosage: 600 MILLIGRAM, ONCE A DAY
     Route: 048
     Dates: start: 20100128
  6. CHOLECALCIFEROL [Concomitant]
     Active Substance: CHOLECALCIFEROL
     Indication: Osteoporosis
     Dosage: 2000 INTERNATIONAL UNIT/, EVERY 2 WEEK
     Route: 048
     Dates: start: 20100128
  7. ETORICOXIB [Concomitant]
     Active Substance: ETORICOXIB
     Indication: Arthralgia
     Dosage: 60 MILLIGRAM, AS NECESSARY
     Route: 048
     Dates: start: 1996
  8. FENTANYL [Concomitant]
     Active Substance: FENTANYL
     Indication: Spinal pain
     Dosage: 75 MICROGRAM (75 UGON EPATCH EVERY THREE DAYS)
     Route: 065
     Dates: start: 20080417
  9. LYRICA [Concomitant]
     Active Substance: PREGABALIN
     Indication: Neuralgia
     Dosage: 150 MILLIGRAM
     Route: 048
     Dates: start: 20080417
  10. METAMIZOLE SODIUM [Concomitant]
     Active Substance: METAMIZOLE SODIUM
     Indication: Analgesic therapy
     Dosage: 500 MILLIGRAM, AS NECESSARY
     Route: 048
     Dates: start: 1996
  11. METOCLOPRAMIDE [Concomitant]
     Active Substance: METOCLOPRAMIDE
     Indication: Nausea
     Dosage: 10 MILLIGRAM, FOUR TIMES/DAY
     Route: 048
     Dates: start: 20150113
  12. METOPROLOL SUCCINATE [Concomitant]
     Active Substance: METOPROLOL SUCCINATE
     Indication: Hypertonia
     Dosage: 47.5 MILLIGRAM, ONCE A DAY
     Route: 048
     Dates: start: 20171026
  13. OMEPRAZOLE [Concomitant]
     Active Substance: OMEPRAZOLE
     Indication: Dyspepsia
     Dosage: 40 MILLIGRAM, TWO TIMES A DAY
     Route: 065
     Dates: start: 20070227
  14. PREDNISOLONE [Concomitant]
     Active Substance: PREDNISOLONE
     Indication: Rheumatoid arthritis
     Dosage: 5 MILLIGRAM, ONCE A DAY
     Route: 048
     Dates: start: 1996
  15. PROLIA [Concomitant]
     Active Substance: DENOSUMAB
     Indication: Osteoporosis
     Dosage: 60 MILLIGRAM, 6 MONTH
     Route: 065
     Dates: start: 20100128
  16. SULFASALAZINE [Concomitant]
     Active Substance: SULFASALAZINE
     Indication: Rheumatoid arthritis
     Dosage: 2 DOSAGE FORM, TWO TIMES A DAY
     Route: 048
     Dates: start: 20210216
  17. VITAMIN E FORTE [Concomitant]
     Indication: Hypovitaminosis
     Dosage: 400 INTERNATIONAL UNIT, ONCE A DAY
     Route: 048
     Dates: start: 20051010
  18. ZOLPIDEM [Concomitant]
     Active Substance: ZOLPIDEM TARTRATE
     Indication: Sleep disorder
     Dosage: 10 MILLIGRAM, ONCE A DAY
     Route: 065
     Dates: start: 20051010

REACTIONS (2)
  - Bursitis [Recovered/Resolved]
  - Arthrodesis [Recovered/Resolved]

NARRATIVE: CASE EVENT DATE: 20210715
